FAERS Safety Report 4957762-4 (Version None)
Quarter: 2006Q1

REPORT INFORMATION
  Report Type: 
  Country: None (occurrence: None)
  Receive Date: 20060324
  Receipt Date: 20060313
  Transmission Date: 20060701
  Serious: Yes (Death)
  Sender: FDA-Public Use
  Company Number: A-CH2006-11794

PATIENT
  Age: 64 Year
  Sex: Male
  Weight: 65 kg

DRUGS (8)
  1. TRACLEER [Suspect]
     Indication: PULMONARY HYPERTENSION
     Dosage: 62.5 MG BID ORAL
     Route: 048
     Dates: start: 20040604, end: 20050119
  2. METFORMIN [Concomitant]
  3. ACENOCOUMAROL [Concomitant]
  4. FUROSEMIDE [Concomitant]
  5. SPIRONOLACTONE [Concomitant]
  6. FLUVOXAMINE [Concomitant]
  7. DOMPERIDONE [Concomitant]
  8. AMARYL [Concomitant]

REACTIONS (1)
  - DEATH [None]
